FAERS Safety Report 5568876-2 (Version None)
Quarter: 2007Q4

REPORT INFORMATION
  Report Type: 
  Country: None (occurrence: None)
  Receive Date: 20071220
  Receipt Date: 20070222
  Transmission Date: 20080405
  Serious: No
  Sender: FDA-Public Use
  Company Number: A0640595A

PATIENT
  Age: 67 Year
  Sex: Male

DRUGS (5)
  1. AVODART [Suspect]
     Indication: BENIGN PROSTATIC HYPERPLASIA
     Dosage: .5MG PER DAY
     Route: 048
  2. HYDROCHLOROTHIAZIDE [Concomitant]
  3. ACEON [Concomitant]
  4. FORTAMET [Concomitant]
  5. LIPITOR [Concomitant]

REACTIONS (2)
  - SEMEN DISCOLOURATION [None]
  - SEMEN VOLUME DECREASED [None]
